FAERS Safety Report 8791247 (Version 1)
Quarter: 2012Q4

REPORT INFORMATION
  Report Type: Spontaneous
  Country: US (occurrence: None)
  Receive Date: 20120914
  Receipt Date: 20120914
  Transmission Date: 20130627
  Serious: Yes (Death, Life-Threatening)
  Sender: FDA-Public Use
  Company Number: None

PATIENT
  Age: 89 Year
  Sex: Male
  Weight: 78.93 kg

DRUGS (1)
  1. PRADAXA [Suspect]
     Indication: ATRIAL FIBRILLATION

REACTIONS (8)
  - Epistaxis [None]
  - Fatigue [None]
  - Pallor [None]
  - Fall [None]
  - Haematemesis [None]
  - Haemorrhage [None]
  - Pulmonary oedema [None]
  - Sepsis [None]
